FAERS Safety Report 18277868 (Version 5)
Quarter: 2021Q3

REPORT INFORMATION
  Report Type: Report from Study
  Country: DE (occurrence: DE)
  Receive Date: 20200917
  Receipt Date: 20210927
  Transmission Date: 20211014
  Serious: Yes (Hospitalization)
  Sender: FDA-Public Use
  Company Number: DE-MYLANLABS-2020M1078229

PATIENT
  Sex: Female
  Weight: 87.3 kg

DRUGS (15)
  1. LOPERAMIDE [Concomitant]
     Active Substance: LOPERAMIDE
     Indication: DIARRHOEA
     Dosage: 2 MILLIGRAM, QD (ONCE IN THE MORNING)
     Route: 048
     Dates: start: 20200709
  2. ANASTROZOLE. [Suspect]
     Active Substance: ANASTROZOLE
     Indication: BREAST CANCER
     Dosage: 1 MILLIGRAM, QD
     Route: 048
     Dates: start: 20200522, end: 20200717
  3. PANTOPRAZOLE SODIUM. [Concomitant]
     Active Substance: PANTOPRAZOLE SODIUM
     Indication: DIARRHOEA
     Dosage: 40 MILLIGRAM, QD (ONCE IN THE MORNING)
     Route: 048
     Dates: start: 20200709, end: 202009
  4. ANASTROZOLE. [Suspect]
     Active Substance: ANASTROZOLE
     Indication: BREAST CANCER METASTATIC
     Dosage: 600 MG, QD (SCHEME 21 DAYS INTAKE, 7 DAYS PAUSE)
     Route: 048
     Dates: start: 20200615, end: 20200717
  5. KISQALI [Suspect]
     Active Substance: RIBOCICLIB
     Indication: BREAST CANCER METASTATIC
     Dosage: UNK
     Route: 048
     Dates: end: 20200930
  6. XGEVA [Concomitant]
     Active Substance: DENOSUMAB
     Indication: HER2 NEGATIVE BREAST CANCER
     Dosage: 480 MILLIGRAM, QW (120 MG, (FOUR TIMES WEEKLY))
     Route: 065
     Dates: start: 20200709
  7. CALCILAC                           /00751524/ [Concomitant]
     Indication: CALCIUM DEFICIENCY
     Dosage: 500 MG (TWICE IN THE MORNING)
     Route: 048
     Dates: start: 20200709
  8. KISQALI [Suspect]
     Active Substance: RIBOCICLIB
     Indication: HER2 NEGATIVE BREAST CANCER
     Dosage: 600 MILLIGRAM (SCHEME 21 DAYS INTAKE, 7 DAYS PAUSE)
     Route: 048
     Dates: start: 20200615, end: 20200717
  9. MELPERONE [Concomitant]
     Active Substance: MELPERONE
     Indication: TENSION
  10. MOCLOBEMIDE [Concomitant]
     Active Substance: MOCLOBEMIDE
     Indication: DEPRESSION
     Dosage: 200 MILLIGRAM, QD (ONCE IN THE MORNING)
     Route: 065
     Dates: start: 2000
  11. MELPERONE [Concomitant]
     Active Substance: MELPERONE
     Indication: RESTLESSNESS
     Dosage: 25 MILLIGRAM, QD (ONCE IN THE EVENTING)
     Route: 048
     Dates: start: 2016
  12. MOCLOBEMIDE [Concomitant]
     Active Substance: MOCLOBEMIDE
     Dosage: 300 MILLIGRAM, QD (ONCE IN THE MORNING)
     Route: 065
     Dates: start: 2000
  13. PANTOPRAZOLE SODIUM. [Concomitant]
     Active Substance: PANTOPRAZOLE SODIUM
     Indication: ABDOMINAL PAIN UPPER
     Dosage: 40 MILLIGRAM
     Route: 048
     Dates: start: 202009
  14. BISOPROLOL [Concomitant]
     Active Substance: BISOPROLOL
     Indication: HYPERTENSION
     Dosage: 2.5 MILLIGRAM, QD (ONCE IN THE MORNING)
     Route: 048
     Dates: start: 2010
  15. XGEVA [Concomitant]
     Active Substance: DENOSUMAB
     Indication: BREAST CANCER METASTATIC

REACTIONS (16)
  - Gamma-glutamyltransferase increased [Unknown]
  - Fatigue [Unknown]
  - Cholecystitis [Recovered/Resolved]
  - Nausea [Unknown]
  - Abdominal pain upper [Recovered/Resolved]
  - Aspartate aminotransferase increased [Unknown]
  - Hepatotoxicity [Recovered/Resolved]
  - Pruritus [Unknown]
  - Alanine aminotransferase increased [Unknown]
  - Photopsia [Recovered/Resolved]
  - Urticaria [Recovered/Resolved]
  - Skin ulcer [Not Recovered/Not Resolved]
  - Chromaturia [Unknown]
  - Nephritis [Recovered/Resolved]
  - Drug-induced liver injury [Recovered/Resolved]
  - Erythema [Not Recovered/Not Resolved]

NARRATIVE: CASE EVENT DATE: 20200625
